FAERS Safety Report 20175433 (Version 4)
Quarter: 2022Q3

REPORT INFORMATION
  Report Type: Spontaneous
  Country: JP (occurrence: JP)
  Receive Date: 20211213
  Receipt Date: 20220930
  Transmission Date: 20221026
  Serious: Yes (Hospitalization, Other)
  Sender: FDA-Public Use
  Company Number: JP-GLAXOSMITHKLINE-JP2021JPN251231

PATIENT

DRUGS (9)
  1. INCRUSE ELLIPTA [Suspect]
     Active Substance: UMECLIDINIUM BROMIDE
     Indication: Chronic obstructive pulmonary disease
     Dosage: 62.5 ?G, 1D
     Route: 055
     Dates: start: 20161026, end: 20180619
  2. SERETIDE [Suspect]
     Active Substance: FLUTICASONE PROPIONATE\SALMETEROL XINAFOATE
     Indication: Asthma
     Dosage: 500 ?G, 1D
     Route: 055
     Dates: start: 20160419, end: 20180910
  3. MINOCYCLINE HYDROCHLORIDE [Suspect]
     Active Substance: MINOCYCLINE HYDROCHLORIDE
     Indication: Pneumonia
     Dosage: 200 MG, 1D
     Route: 041
     Dates: start: 20180508, end: 20180521
  4. ZOSYN [Suspect]
     Active Substance: PIPERACILLIN SODIUM\TAZOBACTAM SODIUM
     Indication: Pneumonia
     Dosage: 4.5 G, TID
     Route: 041
     Dates: start: 20180509, end: 20180520
  5. VANCOMYCIN HYDROCHLORIDE [Suspect]
     Active Substance: VANCOMYCIN HYDROCHLORIDE
     Indication: Pneumonia
     Dosage: 2 G, 1D
     Route: 048
     Dates: start: 20180523, end: 20180529
  6. OLMETEC TABLETS [Concomitant]
     Indication: Hypertension
     Dosage: 20 MG, 1D
     Route: 048
     Dates: start: 20160525, end: 20180910
  7. AMLODIPINE [Concomitant]
     Active Substance: AMLODIPINE BESYLATE
     Indication: Hypertension
     Dosage: 2.5 MG, 1D
     Route: 048
     Dates: start: 20170315
  8. RABEPRAZOLE SODIUM [Concomitant]
     Active Substance: RABEPRAZOLE SODIUM
     Indication: Gastrooesophageal reflux disease
     Dosage: 10 MG, 1D
     Route: 048
     Dates: start: 20160525, end: 20180910
  9. CARBOCYSTEINE [Concomitant]
     Active Substance: CARBOCYSTEINE
     Indication: Bronchitis
     Dosage: 1500 MG, 1D
     Route: 048
     Dates: start: 20160831, end: 20180910

REACTIONS (8)
  - Flatulence [Recovered/Resolved]
  - Abdominal distension [Recovered/Resolved]
  - Constipation [Recovered/Resolved]
  - Clostridium difficile colitis [Recovering/Resolving]
  - Abdominal pain [Unknown]
  - Pneumonia [Recovering/Resolving]
  - Gastrooesophageal reflux disease [Not Recovered/Not Resolved]
  - Bronchitis [Not Recovered/Not Resolved]

NARRATIVE: CASE EVENT DATE: 20180508
